FAERS Safety Report 22610625 (Version 2)
Quarter: 2023Q2

REPORT INFORMATION
  Report Type: Spontaneous
  Country: JP (occurrence: None)
  Receive Date: 20230616
  Receipt Date: 20230623
  Transmission Date: 20230722
  Serious: Yes (Death, Hospitalization, Other)
  Sender: FDA-Public Use
  Company Number: 2023A137636

PATIENT
  Age: 74 Year
  Sex: Male

DRUGS (2)
  1. BREZTRI [Suspect]
     Active Substance: BUDESONIDE\FORMOTEROL\GLYCOPYRROLATE
     Indication: Chronic obstructive pulmonary disease
     Dosage: DOSE UNKNOWN
     Route: 055
  2. AMOXICILLIN [Concomitant]
     Active Substance: AMOXICILLIN
     Indication: Infectious pleural effusion
     Dosage: DOSE UNKNOWN
     Route: 048

REACTIONS (11)
  - Cardio-respiratory arrest [Fatal]
  - Cardiac failure [Unknown]
  - COVID-19 pneumonia [Unknown]
  - Interstitial lung disease [Recovering/Resolving]
  - Pneumonia bacterial [Recovering/Resolving]
  - SARS-CoV-2 test positive [Recovered/Resolved]
  - Hypophagia [Unknown]
  - Delirium [Unknown]
  - Depressed level of consciousness [Unknown]
  - Dyspnoea [Unknown]
  - Oral candidiasis [Unknown]
